FAERS Safety Report 8266935-7 (Version None)
Quarter: 2012Q2

REPORT INFORMATION
  Report Type: 
  Country: None (occurrence: None)
  Receive Date: 20120404
  Receipt Date: 20120404
  Transmission Date: 20120825
  Serious: Yes (Hospitalization)
  Sender: FDA-Public Use
  Company Number: None

PATIENT
  Age: 59 Year
  Sex: Female
  Weight: 118.1 kg

DRUGS (17)
  1. ALISKEN [Suspect]
  2. ELAVIL [Concomitant]
  3. PAXIL [Concomitant]
  4. VALSARTAN [Suspect]
  5. VANCOMYCIN [Suspect]
     Indication: LOCALISED INFECTION
     Dosage: 1000MG Q12 IV RECENT
     Route: 042
  6. BYETTA [Concomitant]
  7. LAMICTAL [Concomitant]
  8. KETOROLAC TROMETHAMINE [Suspect]
  9. VIT C [Concomitant]
  10. METHADONE HCL [Concomitant]
  11. ZANAFLEX [Concomitant]
  12. CELEBREX [Suspect]
  13. LANTUS [Concomitant]
  14. MELOXICAM [Suspect]
     Indication: BACK PAIN
     Dosage: CHRONIC
  15. TEXTURNA [Concomitant]
  16. ASPIRIN [Concomitant]
  17. MOBIC [Concomitant]

REACTIONS (5)
  - NEPHROPATHY TOXIC [None]
  - IDIOSYNCRATIC DRUG REACTION [None]
  - RENAL FAILURE ACUTE [None]
  - TOXICITY TO VARIOUS AGENTS [None]
  - GASTRIC PERFORATION [None]
